FAERS Safety Report 8810325 (Version 2)
Quarter: 2012Q4

REPORT INFORMATION
  Report Type: 
  Country: PH (occurrence: PH)
  Receive Date: 20120926
  Receipt Date: 20121009
  Transmission Date: 20130627
  Serious: Yes (Death, Life-Threatening, Hospitalization, Disabling)
  Sender: FDA-Public Use
  Company Number: PH-009507513-1209PHL007770

PATIENT
  Age: 30 Year
  Sex: Female
  Weight: 62 kg

DRUGS (3)
  1. INVANZ [Suspect]
     Indication: SEPSIS
     Dosage: OD
     Route: 017
     Dates: start: 20120620, end: 20120620
  2. ACETAMINOPHEN [Concomitant]
     Indication: PYREXIA
     Dosage: 500 mg, qd
     Dates: start: 20120620, end: 20120621
  3. NORGESIC FORTE [Concomitant]
     Dosage: 1 dose flexible
     Dates: start: 20120620

REACTIONS (2)
  - Sepsis [Fatal]
  - Convulsion [Unknown]
